FAERS Safety Report 17534924 (Version 7)
Quarter: 2021Q3

REPORT INFORMATION
  Report Type: Spontaneous
  Country: US (occurrence: US)
  Receive Date: 20200312
  Receipt Date: 20210816
  Transmission Date: 20211014
  Serious: No
  Sender: FDA-Public Use
  Company Number: US-AKCEA THERAPEUTICS-2020IS001003

PATIENT
  Age: 80 Year
  Sex: Male
  Weight: 103.64 kg

DRUGS (18)
  1. ENTRESTO [Concomitant]
     Active Substance: SACUBITRIL\VALSARTAN
     Route: 065
  2. GLUCOSAMINE [Concomitant]
     Active Substance: GLUCOSAMINE
  3. ELIQUIS [Concomitant]
     Active Substance: APIXABAN
     Route: 065
  4. LEVOTHYROXINE. [Concomitant]
     Active Substance: LEVOTHYROXINE
     Route: 065
  5. TEGSEDI [Suspect]
     Active Substance: INOTERSEN SODIUM
     Indication: HEREDITARY NEUROPATHIC AMYLOIDOSIS
     Route: 058
     Dates: start: 20190301
  6. SPIRONOLACTONE. [Concomitant]
     Active Substance: SPIRONOLACTONE
     Route: 065
  7. MULTIVITAMINS /00116001/ [Concomitant]
     Active Substance: VITAMINS
     Route: 065
  8. VITAMIN C [Concomitant]
     Active Substance: ASCORBIC ACID
     Route: 065
  9. VITAMIN D /00107901/ [Concomitant]
     Active Substance: ERGOCALCIFEROL
     Route: 065
  10. TEGSEDI [Suspect]
     Active Substance: INOTERSEN SODIUM
     Route: 058
  11. OMEGA 3?6?9 /01333901/ [Concomitant]
     Active Substance: OMEGA-3 FATTY ACIDS
     Route: 065
  12. JARDIANCE [Concomitant]
     Active Substance: EMPAGLIFLOZIN
     Route: 065
  13. VITAMIN D3 [Concomitant]
     Active Substance: CHOLECALCIFEROL
     Route: 065
  14. ISSD (INTEGRATED SYRINGE SAFETY DEVICE) [Suspect]
     Active Substance: DEVICE
  15. FERROUS SULFATE. [Concomitant]
     Active Substance: FERROUS SULFATE
     Route: 065
  16. AMIODARONE HCL [Concomitant]
     Active Substance: AMIODARONE HYDROCHLORIDE
     Route: 065
  17. TORSEMIDE. [Concomitant]
     Active Substance: TORSEMIDE
     Route: 065
  18. DOXAZOSIN MESYLATE. [Concomitant]
     Active Substance: DOXAZOSIN MESYLATE
     Route: 065

REACTIONS (16)
  - Bacterial test positive [Unknown]
  - Urinary casts present [Unknown]
  - White blood cells urine positive [Unknown]
  - Platelet count decreased [Not Recovered/Not Resolved]
  - Cells in urine [Unknown]
  - Urine abnormality [Unknown]
  - Somnolence [Unknown]
  - Urinary occult blood positive [Unknown]
  - Glucose urine present [Unknown]
  - Glomerular filtration rate decreased [Unknown]
  - Red blood cells urine positive [Unknown]
  - Blood creatinine increased [Unknown]
  - Urine protein/creatinine ratio increased [Unknown]
  - Urine leukocyte esterase positive [Unknown]
  - Aspartate aminotransferase abnormal [Unknown]
  - Protein urine present [Unknown]

NARRATIVE: CASE EVENT DATE: 20200921
